FAERS Safety Report 24339592 (Version 1)
Quarter: 2024Q3

REPORT INFORMATION
  Report Type: Spontaneous
  Country: US (occurrence: US)
  Receive Date: 20240919
  Receipt Date: 20240919
  Transmission Date: 20241017
  Serious: No
  Sender: ABBVIE
  Company Number: US-ABBVIE-5927765

PATIENT
  Age: 71 Year
  Weight: 76.203 kg

DRUGS (1)
  1. RESTASIS [Suspect]
     Active Substance: CYCLOSPORINE
     Indication: Dry eye
     Dosage: FORM STRENGTH: 0.05 MILLIGRAM
     Route: 047
     Dates: start: 20240911, end: 20240917

REACTIONS (6)
  - Oropharyngeal pain [Unknown]
  - Dysphonia [Recovering/Resolving]
  - Cough [Recovering/Resolving]
  - Swelling [Recovering/Resolving]
  - Rhinorrhoea [Recovering/Resolving]
  - Rash macular [Recovering/Resolving]

NARRATIVE: CASE EVENT DATE: 20240915
